FAERS Safety Report 12158627 (Version 1)
Quarter: 2016Q1

REPORT INFORMATION
  Report Type: Spontaneous
  Country: US (occurrence: US)
  Receive Date: 20160308
  Receipt Date: 20160308
  Transmission Date: 20160526
  Serious: Yes (Death)
  Sender: FDA-Public Use
  Company Number: US-ROCHE-1722487

PATIENT
  Sex: Male

DRUGS (1)
  1. XOLAIR [Suspect]
     Active Substance: OMALIZUMAB
     Indication: ALLERGY TO ARTHROPOD STING
     Dosage: WAS ON XOLAIR FOR 2 YEARS
     Route: 065

REACTIONS (1)
  - Neoplasm malignant [Fatal]
